FAERS Safety Report 6430933-6 (Version None)
Quarter: 2009Q4

REPORT INFORMATION
  Report Type: 
  Country: None (occurrence: None)
  Receive Date: 20091105
  Receipt Date: 20091105
  Transmission Date: 20100525
  Serious: Yes (Other)
  Sender: FDA-Public Use
  Company Number: None

PATIENT
  Sex: Male
  Weight: 99.7913 kg

DRUGS (2)
  1. SUBOXONE [Suspect]
     Indication: DRUG DEPENDENCE
     Dosage: 8MG DAILY SL
     Route: 060
     Dates: start: 20021118, end: 20091023
  2. SUBUTEX [Suspect]
     Dosage: 8MG DAILY SL
     Route: 060
     Dates: start: 20021118, end: 20091023

REACTIONS (3)
  - DISCOMFORT [None]
  - DRUG DEPENDENCE [None]
  - DRUG WITHDRAWAL SYNDROME [None]
